FAERS Safety Report 10262987 (Version 2)
Quarter: 2014Q2

REPORT INFORMATION
  Report Type: Report from Study
  Country: US (occurrence: US)
  Receive Date: 20140626
  Receipt Date: 20140626
  Transmission Date: 20141212
  Serious: Yes (Death)
  Sender: FDA-Public Use
  Company Number: US-MYLANLABS-2013S1025191

PATIENT
  Age: 58 Year
  Sex: Male

DRUGS (9)
  1. CLOZAPINE TABLETS [Suspect]
     Indication: SCHIZOPHRENIA
     Route: 048
     Dates: start: 2003, end: 2013
  2. FLUVOXAMINE [Concomitant]
  3. ATIVAN [Concomitant]
  4. MEGACE [Concomitant]
  5. COGENTIN [Concomitant]
     Dosage: 1 IN AM AND 2 AT DINNER
  6. DEPAKOTE [Concomitant]
     Route: 048
  7. MIRALAX /00754501/ [Concomitant]
  8. HYTRIN [Concomitant]
  9. ASA [Concomitant]

REACTIONS (1)
  - Myocardial infarction [Fatal]
